FAERS Safety Report 13473600 (Version 1)
Quarter: 2017Q2

REPORT INFORMATION
  Report Type: Spontaneous
  Country: US (occurrence: US)
  Receive Date: 20170424
  Receipt Date: 20170424
  Transmission Date: 20170830
  Serious: No
  Sender: FDA-Public Use
  Company Number: US-BAYER-2017-070348

PATIENT
  Sex: Female
  Weight: 56.7 kg

DRUGS (1)
  1. CLIMARA PRO [Suspect]
     Active Substance: ESTRADIOL\LEVONORGESTREL
     Indication: MENOPAUSAL DISORDER
     Dosage: UNK
     Route: 062

REACTIONS (2)
  - Product physical issue [None]
  - Product adhesion issue [Unknown]

NARRATIVE: CASE EVENT DATE: 20170330
